FAERS Safety Report 20964036 (Version 1)
Quarter: 2022Q2

REPORT INFORMATION
  Report Type: Spontaneous
  Country: US (occurrence: US)
  Receive Date: 20220615
  Receipt Date: 20220615
  Transmission Date: 20220721
  Serious: Yes (Death, Life-Threatening, Hospitalization, Other)
  Sender: FDA-Public Use
  Company Number: US-PFIZER INC-202200812733

PATIENT
  Age: 45 Year
  Sex: Male

DRUGS (11)
  1. RITUXIMAB [Suspect]
     Active Substance: RITUXIMAB
     Indication: Multiple sclerosis
     Dosage: UNK (INFUSIONS)
     Dates: start: 201506, end: 202009
  2. CEFEPIME HYDROCHLORIDE [Suspect]
     Active Substance: CEFEPIME HYDROCHLORIDE
     Indication: COVID-19
     Dosage: UNK
     Dates: start: 20210107, end: 20210112
  3. MEROPENEM [Suspect]
     Active Substance: MEROPENEM
     Indication: COVID-19
     Dosage: UNK (14 DAYS)
     Dates: start: 20210112
  4. FENTANYL CITRATE [Suspect]
     Active Substance: FENTANYL CITRATE
     Indication: COVID-19
     Dosage: UNK
     Route: 041
     Dates: start: 20210130
  5. FENTANYL CITRATE [Suspect]
     Active Substance: FENTANYL CITRATE
     Indication: Sedation
  6. PROPOFOL [Suspect]
     Active Substance: PROPOFOL
     Indication: COVID-19
     Dosage: UNK
     Route: 041
     Dates: start: 20210130
  7. PROPOFOL [Suspect]
     Active Substance: PROPOFOL
     Indication: Sedation
  8. NOREPINEPHRINE BITARTRATE [Suspect]
     Active Substance: NOREPINEPHRINE BITARTRATE
     Indication: COVID-19
     Dosage: UNK
     Dates: start: 20210130
  9. DEXAMETHASONE [Suspect]
     Active Substance: DEXAMETHASONE
     Indication: COVID-19
     Dosage: UNK (FOR 10 DAYS)
     Dates: start: 20210107
  10. REMDESIVIR [Suspect]
     Active Substance: REMDESIVIR
     Indication: COVID-19
     Dosage: UNK
     Dates: start: 20210107
  11. VASOPRESSIN [Suspect]
     Active Substance: VASOPRESSIN
     Indication: COVID-19
     Dosage: UNK
     Route: 041
     Dates: start: 20210203

REACTIONS (5)
  - Multiple organ dysfunction syndrome [Fatal]
  - Unresponsive to stimuli [Fatal]
  - Sepsis [Fatal]
  - COVID-19 [Fatal]
  - Drug ineffective [Fatal]

NARRATIVE: CASE EVENT DATE: 20210101
